FAERS Safety Report 9656578 (Version 1)
Quarter: 2013Q4

REPORT INFORMATION
  Report Type: Spontaneous
  Country: US (occurrence: US)
  Receive Date: 20131030
  Receipt Date: 20131030
  Transmission Date: 20140711
  Serious: No
  Sender: FDA-Public Use
  Company Number: US-GLAXOSMITHKLINE-A1010099A

PATIENT
  Age: 77 Year
  Sex: Female

DRUGS (3)
  1. SEREVENT [Suspect]
     Indication: ASTHMA
     Dosage: 50MCG TWICE PER DAY
     Route: 055
     Dates: start: 2007
  2. ZYRTEC [Concomitant]
  3. SINGULAR [Concomitant]

REACTIONS (2)
  - Wheezing [Recovered/Resolved]
  - Product quality issue [Unknown]
